FAERS Safety Report 20678030 (Version 1)
Quarter: 2022Q2

REPORT INFORMATION
  Report Type: Spontaneous
  Country: US (occurrence: US)
  Receive Date: 20220406
  Receipt Date: 20220406
  Transmission Date: 20220721
  Serious: No
  Sender: FDA-Public Use
  Company Number: US-GW PHARMA-202203USGW01681

PATIENT
  Age: 27 Year
  Sex: Female
  Weight: 55.329 kg

DRUGS (4)
  1. EPIDIOLEX [Suspect]
     Active Substance: CANNABIDIOL
     Indication: Seizure
     Dosage: 5.06 MG/KG/DAY, 140 MILLIGRAM, BID
     Route: 048
     Dates: start: 20220322
  2. LAMICTAL [Concomitant]
     Active Substance: LAMOTRIGINE
     Indication: Product used for unknown indication
     Dosage: 3 DOSAGE FORM (TABLET), BID
     Route: 065
  3. TYLENOL [Concomitant]
     Active Substance: ACETAMINOPHEN
     Indication: Product used for unknown indication
     Dosage: UNK
     Route: 065
  4. MOTRIN [Concomitant]
     Active Substance: IBUPROFEN
     Indication: Product used for unknown indication
     Dosage: UNK, AS REQUIRED
     Route: 065

REACTIONS (2)
  - Respiration abnormal [Unknown]
  - Rash [Unknown]

NARRATIVE: CASE EVENT DATE: 20220301
